FAERS Safety Report 13550391 (Version 1)
Quarter: 2017Q2

REPORT INFORMATION
  Report Type: Spontaneous
  Country: US (occurrence: US)
  Receive Date: 20170516
  Receipt Date: 20170516
  Transmission Date: 20170830
  Serious: Yes (Hospitalization)
  Sender: FDA-Public Use
  Company Number: None

PATIENT
  Age: 58 Year
  Sex: Female
  Weight: 112 kg

DRUGS (12)
  1. AQUAPHOR [Concomitant]
     Active Substance: PETROLATUM
  2. LEVEMIR [Concomitant]
     Active Substance: INSULIN DETEMIR
  3. METFORMIN [Concomitant]
     Active Substance: METFORMIN HYDROCHLORIDE
  4. BUPROPRION [Concomitant]
     Active Substance: BUPROPION
  5. VITAMIN D [Concomitant]
     Active Substance: CHOLECALCIFEROL
  6. MELATONIN [Suspect]
     Active Substance: MELATONIN
     Indication: INSOMNIA
     Dosage: FREQUENCY - NIGHTLY?DATES OF USE - CHRONIC
     Route: 048
  7. VITAMIN E [Concomitant]
     Active Substance: .ALPHA.-TOCOPHEROL
  8. ASA [Concomitant]
     Active Substance: ASPIRIN
  9. CARVEDILOL. [Concomitant]
     Active Substance: CARVEDILOL
  10. ADVAIR HFA [Concomitant]
     Active Substance: FLUTICASONE PROPIONATE\SALMETEROL XINAFOATE
  11. ZYRTEC [Concomitant]
     Active Substance: CETIRIZINE HYDROCHLORIDE
  12. FE [Concomitant]
     Active Substance: IRON

REACTIONS (2)
  - Mental status changes [None]
  - Somnolence [None]

NARRATIVE: CASE EVENT DATE: 20160309
